FAERS Safety Report 16559633 (Version 1)
Quarter: 2019Q3

REPORT INFORMATION
  Report Type: Spontaneous
  Country: US (occurrence: US)
  Receive Date: 20190710
  Receipt Date: 20190710
  Transmission Date: 20191004
  Serious: Yes (Life-Threatening, Hospitalization, Disabling, Other)
  Sender: FDA-Public Use
  Company Number: None

PATIENT
  Age: 40 Year
  Sex: Female
  Weight: 65.25 kg

DRUGS (1)
  1. MISOPROSTOL. [Suspect]
     Active Substance: MISOPROSTOL
     Indication: ABORTION MISSED
     Dosage: ?          QUANTITY:9 TABLET(S);OTHER ROUTE:IN THE CHEEK?
     Dates: start: 20180601, end: 20180603

REACTIONS (2)
  - Cerebrovascular accident [None]
  - Product use in unapproved indication [None]

NARRATIVE: CASE EVENT DATE: 20180604
